FAERS Safety Report 15867167 (Version 1)
Quarter: 2018Q4

REPORT INFORMATION
  Report Type: Spontaneous
  Country: US (occurrence: US)
  Receive Date: 20181231
  Receipt Date: 20181231
  Transmission Date: 20190205
  Serious: Yes (Other)
  Sender: FDA-Public Use
  Company Number: None

PATIENT
  Age: 89 Year
  Sex: Male

DRUGS (1)
  1. PROCRIT [Suspect]
     Active Substance: ERYTHROPOIETIN
     Indication: ANAEMIA
     Dosage: ?          OTHER STRENGTH:40000U/ML;OTHER FREQUENCY:OTHER;?
     Route: 058
     Dates: start: 20180604, end: 20181213

REACTIONS (2)
  - Haematocrit increased [None]
  - Product dose omission [None]

NARRATIVE: CASE EVENT DATE: 20181221
